FAERS Safety Report 15767647 (Version 1)
Quarter: 2018Q4

REPORT INFORMATION
  Report Type: Spontaneous
  Country: CN (occurrence: CN)
  Receive Date: 20181227
  Receipt Date: 20181227
  Transmission Date: 20190205
  Serious: Yes (Other)
  Sender: FDA-Public Use
  Company Number: CN-JNJFOC-20181232950

PATIENT

DRUGS (1)
  1. XARELTO [Suspect]
     Active Substance: RIVAROXABAN
     Indication: THROMBOLYSIS
     Route: 048
     Dates: start: 2018

REACTIONS (1)
  - Peritoneal neoplasm [Unknown]

NARRATIVE: CASE EVENT DATE: 2018
